FAERS Safety Report 20453295 (Version 1)
Quarter: 2022Q1

REPORT INFORMATION
  Report Type: Spontaneous
  Country: US (occurrence: None)
  Receive Date: 20220209
  Receipt Date: 20220209
  Transmission Date: 20220423
  Serious: Yes (Death)
  Sender: FDA-Public Use
  Company Number: None

PATIENT
  Age: 61 Year
  Sex: Female

DRUGS (8)
  1. VERZENIO [Suspect]
     Active Substance: ABEMACICLIB
     Indication: Breast cancer female
     Dosage: FREQUENCY : TWICE A DAY;?
     Route: 048
     Dates: start: 20211223, end: 20220122
  2. ADMELOG [Concomitant]
     Active Substance: INSULIN LISPRO
  3. ANASTROZOLE [Concomitant]
     Active Substance: ANASTROZOLE
  4. GABAPENTIN [Concomitant]
     Active Substance: GABAPENTIN
  5. IBUPROFEN [Concomitant]
     Active Substance: IBUPROFEN
  6. MORPHINE SULFATE [Concomitant]
     Active Substance: MORPHINE SULFATE
  7. NOVOLIN N [Concomitant]
  8. TRAMADOL HCL [Concomitant]
     Active Substance: TRAMADOL HYDROCHLORIDE

REACTIONS (1)
  - Death [None]

NARRATIVE: CASE EVENT DATE: 20220122
